FAERS Safety Report 5589461-2 (Version None)
Quarter: 2008Q1

REPORT INFORMATION
  Report Type: 
  Country: None (occurrence: None)
  Receive Date: 20080110
  Receipt Date: 20080110
  Transmission Date: 20080703
  Serious: No
  Sender: FDA-Public Use
  Company Number: None

PATIENT
  Age: 52 Year
  Sex: Female
  Weight: 90.7194 kg

DRUGS (2)
  1. ABILIFY [Suspect]
     Indication: BIPOLAR DISORDER
     Dosage: 5MG ORAL QD
     Route: 048
  2. EFFEXOR XR [Concomitant]

REACTIONS (2)
  - BLUNTED AFFECT [None]
  - TARDIVE DYSKINESIA [None]
